FAERS Safety Report 7459560-9 (Version None)
Quarter: 2011Q2

REPORT INFORMATION
  Report Type: 
  Country: None (occurrence: None)
  Receive Date: 20110505
  Receipt Date: 20110504
  Transmission Date: 20111010
  Serious: Yes (Other)
  Sender: FDA-Public Use
  Company Number: US-BRISTOL-MYERS SQUIBB COMPANY-15718273

PATIENT

DRUGS (1)
  1. ABILIFY [Suspect]

REACTIONS (3)
  - TIC [None]
  - VISION BLURRED [None]
  - PSYCHOTIC DISORDER [None]
